FAERS Safety Report 16184146 (Version 1)
Quarter: 2019Q2

REPORT INFORMATION
  Report Type: Spontaneous
  Country: US (occurrence: US)
  Receive Date: 20190410
  Receipt Date: 20190410
  Transmission Date: 20190711
  Serious: No
  Sender: FDA-Public Use
  Company Number: None

PATIENT
  Age: 27 Year
  Sex: Female
  Weight: 59 kg

DRUGS (1)
  1. DALBAVANCIN. [Suspect]
     Active Substance: DALBAVANCIN
     Indication: SKIN BACTERIAL INFECTION
     Dosage: ?          OTHER FREQUENCY:ONCE;?
     Route: 042
     Dates: start: 20190322, end: 20190322

REACTIONS (3)
  - Angioedema [None]
  - Pyrexia [None]
  - Rash [None]

NARRATIVE: CASE EVENT DATE: 20190330
